FAERS Safety Report 7608371-X (Version None)
Quarter: 2011Q3

REPORT INFORMATION
  Report Type: 
  Country: None (occurrence: None)
  Receive Date: 20110714
  Receipt Date: 20110614
  Transmission Date: 20111222
  Serious: No
  Sender: FDA-Public Use
  Company Number: US-TYCO HEALTHCARE/MALLINCKRODT-T201101232

PATIENT
  Age: 47 Year
  Sex: Male
  Weight: 97.052 kg

DRUGS (2)
  1. EMBEDA [Concomitant]
     Indication: BACK PAIN
     Dosage: UNK
     Dates: end: 20110101
  2. MORPHINE [Suspect]
     Indication: BACK PAIN
     Dosage: 30 MG, BID
     Dates: start: 20110101

REACTIONS (2)
  - IRRITABILITY [None]
  - DRUG INEFFECTIVE [None]
